FAERS Safety Report 10197920 (Version 2)
Quarter: 2014Q2

REPORT INFORMATION
  Report Type: Spontaneous
  Country: KR (occurrence: KR)
  Receive Date: 20140527
  Receipt Date: 20140527
  Transmission Date: 20141212
  Serious: Yes (Hospitalization)
  Sender: FDA-Public Use
  Company Number: KR-BANPHARM-20142697

PATIENT
  Age: 7 Month
  Sex: Female

DRUGS (1)
  1. IBUPROFEN UNKNOWN PRODUCT [Suspect]
     Indication: PYREXIA
     Dosage: 10 MG/KG, QD,
     Route: 048

REACTIONS (2)
  - Vanishing bile duct syndrome [Recovered/Resolved]
  - Toxic epidermal necrolysis [Recovered/Resolved]
